FAERS Safety Report 4848754-4 (Version None)
Quarter: 2005Q4

REPORT INFORMATION
  Report Type: 
  Country: None (occurrence: None)
  Receive Date: 20051206
  Receipt Date: 20051125
  Transmission Date: 20060501
  Serious: Yes (Other)
  Sender: FDA-Public Use
  Company Number: 028-20785-05120049

PATIENT
  Age: 72 Year
  Sex: Male

DRUGS (3)
  1. THALOMID [Suspect]
     Indication: MULTIPLE MYELOMA
     Dosage: 200  MG, DAILY, ORAL
     Route: 048
  2. THALOMID [Suspect]
  3. BIPHOSPHONATES [Suspect]

REACTIONS (1)
  - OSTEONECROSIS [None]
